FAERS Safety Report 18261602 (Version 1)
Quarter: 2020Q3

REPORT INFORMATION
  Report Type: Spontaneous
  Country: PL (occurrence: PL)
  Receive Date: 20200914
  Receipt Date: 20200914
  Transmission Date: 20201103
  Serious: Yes (Life-Threatening)
  Sender: FDA-Public Use
  Company Number: PL-BAYER-2020-188005

PATIENT
  Age: 82 Year
  Sex: Female
  Weight: 80 kg

DRUGS (8)
  1. ALEVE [Suspect]
     Active Substance: NAPROXEN SODIUM
     Indication: SPINAL PAIN
     Dosage: 1 DF
     Route: 048
     Dates: start: 20200102, end: 20200106
  2. EGZYSTA [Concomitant]
     Active Substance: PREGABALIN
     Indication: SPINAL PAIN
     Dosage: DOSAGE UNKNOWN
     Route: 048
     Dates: start: 20200105, end: 20200105
  3. PARACETAMOL [Concomitant]
     Active Substance: ACETAMINOPHEN
     Indication: SPINAL PAIN
     Dosage: 1 DF
     Route: 048
     Dates: start: 20200109, end: 20200109
  4. PARACETAMOL [Concomitant]
     Active Substance: ACETAMINOPHEN
     Indication: SPINAL PAIN
     Dosage: 1 DF
     Route: 048
     Dates: start: 20200103, end: 20200103
  5. ALEVE [Suspect]
     Active Substance: NAPROXEN SODIUM
     Indication: SPINAL PAIN
     Dosage: 1 UNK
     Route: 048
     Dates: start: 20200107, end: 20200111
  6. EGZYSTA [Concomitant]
     Active Substance: PREGABALIN
     Indication: SPINAL PAIN
     Dosage: 1 DF
     Route: 048
     Dates: start: 20200111, end: 20200111
  7. EGZYSTA [Concomitant]
     Active Substance: PREGABALIN
     Indication: SPINAL PAIN
     Dosage: 1 DF
     Route: 048
     Dates: start: 20200106, end: 20200110
  8. PARACETAMOL [Concomitant]
     Active Substance: ACETAMINOPHEN
     Indication: SPINAL PAIN
     Dosage: 1 DF
     Route: 048
     Dates: start: 20200108, end: 20200108

REACTIONS (3)
  - Gastrointestinal haemorrhage [Unknown]
  - Haematemesis [Unknown]
  - Melaena [Unknown]
